FAERS Safety Report 6587928-1 (Version None)
Quarter: 2010Q1

REPORT INFORMATION
  Report Type: 
  Country: None (occurrence: None)
  Receive Date: 20100218
  Receipt Date: 20100208
  Transmission Date: 20100710
  Serious: Yes (Hospitalization)
  Sender: FDA-Public Use
  Company Number: DE-ELI_LILLY_AND_COMPANY-DE201002002217

PATIENT
  Sex: Male

DRUGS (4)
  1. ZYPADHERA [Suspect]
     Indication: SCHIZOPHRENIA, UNDIFFERENTIATED TYPE
     Dosage: 300 MG, UNKNOWN
     Route: 030
     Dates: start: 20091207
  2. CYMBALTA [Concomitant]
     Dosage: 60 MG, UNKNOWN
     Route: 065
  3. REMERGIL [Concomitant]
     Dosage: 30 MG, UNKNOWN
     Route: 065
  4. TRUXAL [Concomitant]
     Dosage: 25 MG, UNKNOWN
     Route: 065

REACTIONS (1)
  - SUPRAVENTRICULAR EXTRASYSTOLES [None]
